FAERS Safety Report 12960085 (Version 1)
Quarter: 2016Q4

REPORT INFORMATION
  Report Type: Report from Study
  Country: CZ (occurrence: CZ)
  Receive Date: 20161121
  Receipt Date: 20161121
  Transmission Date: 20170207
  Serious: Yes (Hospitalization)
  Sender: FDA-Public Use
  Company Number: CZ-BAYER-2016-218578

PATIENT
  Age: 41 Year
  Sex: Female
  Weight: 72 kg

DRUGS (1)
  1. MIRENA [Suspect]
     Active Substance: LEVONORGESTREL
     Indication: CONTRACEPTION
     Dosage: 20 MCG/24HR, CONT
     Route: 015
     Dates: start: 20151217, end: 20160425

REACTIONS (6)
  - Blood pressure fluctuation [None]
  - Vaginal haemorrhage [None]
  - Fatigue [None]
  - Feeling hot [None]
  - Cerebrovascular accident [None]
  - Nausea [None]

NARRATIVE: CASE EVENT DATE: 20160308
